FAERS Safety Report 5954370-3 (Version None)
Quarter: 2008Q4

REPORT INFORMATION
  Report Type: 
  Country: None (occurrence: None)
  Receive Date: 20081112
  Receipt Date: 20081029
  Transmission Date: 20090506
  Serious: Yes (Death)
  Sender: FDA-Public Use
  Company Number: 2008SP022609

PATIENT
  Age: 25 Year
  Sex: Female

DRUGS (4)
  1. BETAMETHASONE SODIUM PHOSPHATE [Suspect]
     Indication: COLITIS ULCERATIVE
     Dosage: ;UNK;RTL
     Route: 054
  2. PREDNISOLONE [Suspect]
     Indication: COLITIS ULCERATIVE
     Dosage: ;UNK;PO
     Route: 048
  3. MESALAMINE [Concomitant]
  4. SALAZOPYRIN [Concomitant]

REACTIONS (20)
  - ALTERED STATE OF CONSCIOUSNESS [None]
  - BLINDNESS [None]
  - BRAIN HERNIATION [None]
  - BRAIN OEDEMA [None]
  - CEREBRAL HAEMORRHAGE [None]
  - CEREBRAL INFARCTION [None]
  - CEREBRAL VENOUS THROMBOSIS [None]
  - COLITIS ULCERATIVE [None]
  - CONDITION AGGRAVATED [None]
  - GASTROINTESTINAL BACTERIAL INFECTION [None]
  - HEADACHE [None]
  - HEMIPLEGIA [None]
  - INTRACRANIAL PRESSURE INCREASED [None]
  - INTRACRANIAL VENOUS SINUS THROMBOSIS [None]
  - MENINGISM [None]
  - RESPIRATORY ARREST [None]
  - SCINTILLATING SCOTOMA [None]
  - SUPERIOR SAGITTAL SINUS THROMBOSIS [None]
  - VENOUS OCCLUSION [None]
  - VOMITING [None]
